FAERS Safety Report 9420399 (Version 1)
Quarter: 2013Q3

REPORT INFORMATION
  Report Type: Spontaneous
  Country: US (occurrence: US)
  Receive Date: 20130725
  Receipt Date: 20130725
  Transmission Date: 20140515
  Serious: No
  Sender: FDA-Public Use
  Company Number: US-ABBOTT-13P-163-1069672-00

PATIENT
  Age: 57 Year
  Sex: Female
  Weight: 49.03 kg

DRUGS (5)
  1. SYNTHROID [Suspect]
     Indication: AUTOIMMUNE THYROIDITIS
     Route: 048
     Dates: start: 20130222
  2. SYNTHROID [Suspect]
     Route: 048
     Dates: start: 20130209, end: 20130221
  3. SYNTHROID [Suspect]
     Dates: start: 20120107, end: 20130208
  4. SYNTHROID [Suspect]
     Dosage: 25-100 MICROGRAMS
     Route: 048
     Dates: start: 201212
  5. CYTOMEL [Concomitant]
     Indication: AUTOIMMUNE THYROIDITIS
     Dates: start: 201303

REACTIONS (8)
  - Eye pain [Not Recovered/Not Resolved]
  - Dry eye [Not Recovered/Not Resolved]
  - Alopecia [Not Recovered/Not Resolved]
  - Hyperthyroidism [Recovered/Resolved]
  - Palpitations [Recovered/Resolved]
  - Dyspnoea [Not Recovered/Not Resolved]
  - Hypothyroidism [Unknown]
  - Blepharitis [Not Recovered/Not Resolved]
